FAERS Safety Report 5232299-6 (Version None)
Quarter: 2007Q1

REPORT INFORMATION
  Report Type: 
  Country: None (occurrence: None)
  Receive Date: 20070207
  Receipt Date: 20070125
  Transmission Date: 20070707
  Serious: Yes (Other)
  Sender: FDA-Public Use
  Company Number: US-JNJFOC-20070107393

PATIENT
  Sex: Female

DRUGS (8)
  1. FENTANYL TRANSDERMAL SYSTEM [Suspect]
  2. FENTANYL TRANSDERMAL SYSTEM [Suspect]
  3. FENTANYL TRANSDERMAL SYSTEM [Suspect]
  4. FENTANYL TRANSDERMAL SYSTEM [Suspect]
  5. FENTANYL TRANSDERMAL SYSTEM [Suspect]
  6. FENTANYL TRANSDERMAL SYSTEM [Suspect]
     Indication: DRUG EXPOSURE DURING PREGNANCY
  7. NEURONTIN [Concomitant]
     Indication: DRUG EXPOSURE DURING PREGNANCY
     Route: 048
  8. KLONOPIN [Concomitant]
     Indication: DRUG EXPOSURE DURING PREGNANCY
     Route: 048

REACTIONS (4)
  - CHILLS [None]
  - DRUG WITHDRAWAL SYNDROME [None]
  - DRUG WITHDRAWAL SYNDROME NEONATAL [None]
  - PREMATURE BABY [None]
